FAERS Safety Report 16364459 (Version 3)
Quarter: 2019Q3

REPORT INFORMATION
  Report Type: Spontaneous
  Country: US (occurrence: US)
  Receive Date: 20190528
  Receipt Date: 20190717
  Transmission Date: 20191004
  Serious: Yes (Hospitalization, Other)
  Sender: FDA-Public Use
  Company Number: US-ASTRAZENECA-2019SE77721

PATIENT
  Age: 28812 Day
  Sex: Male
  Weight: 97 kg

DRUGS (1)
  1. LUMOXITI [Suspect]
     Active Substance: MOXETUMOMAB PASUDOTOX-TDFK
     Indication: HAIRY CELL LEUKAEMIA
     Dosage: 0.04MG/KG UNKNOWN
     Route: 042
     Dates: start: 20190415, end: 20190614

REACTIONS (3)
  - Renal failure [Recovering/Resolving]
  - Haemolytic uraemic syndrome [Recovering/Resolving]
  - Thrombotic thrombocytopenic purpura [Recovering/Resolving]
